FAERS Safety Report 15542724 (Version 1)
Quarter: 2018Q4

REPORT INFORMATION
  Report Type: Spontaneous
  Country: FR (occurrence: FR)
  Receive Date: 20181023
  Receipt Date: 20181023
  Transmission Date: 20190205
  Serious: Yes (Hospitalization)
  Sender: FDA-Public Use
  Company Number: FR-TEVA-2018-FR-965304

PATIENT
  Age: 79 Year
  Sex: Male

DRUGS (7)
  1. PARACETAMOL [Concomitant]
     Active Substance: ACETAMINOPHEN
  2. PAROXETINE (CHLORHYDRATE DE) HEMIHYDRATE [Concomitant]
     Active Substance: PAROXETINE HYDROCHLORIDE
  3. TANGANIL [Concomitant]
     Active Substance: ACETYLLEUCINE
  4. ALPRAZOLAM. [Suspect]
     Active Substance: ALPRAZOLAM
     Indication: ANXIOLYTIC THERAPY
     Route: 048
     Dates: end: 20180819
  5. XARELTO [Concomitant]
     Active Substance: RIVAROXABAN
  6. AMLOR [Concomitant]
     Active Substance: AMLODIPINE BESYLATE
  7. FLECAINE [Concomitant]
     Active Substance: FLECAINIDE

REACTIONS (2)
  - Fall [Recovered/Resolved with Sequelae]
  - Hypotonia [Recovered/Resolved]

NARRATIVE: CASE EVENT DATE: 20180819
